FAERS Safety Report 21358771 (Version 3)
Quarter: 2022Q4

REPORT INFORMATION
  Report Type: Report from Study
  Country: US (occurrence: US)
  Receive Date: 20220921
  Receipt Date: 20221110
  Transmission Date: 20230113
  Serious: Yes (Hospitalization, Other)
  Sender: FDA-Public Use
  Company Number: US-NOVARTISPH-NVSC2022US208403

PATIENT
  Sex: Female

DRUGS (3)
  1. XIIDRA [Suspect]
     Active Substance: LIFITEGRAST
     Indication: Product used for unknown indication
     Dosage: UNK
     Route: 047
     Dates: start: 201703
  2. PREDNISONE [Concomitant]
     Active Substance: PREDNISONE
     Indication: Product used for unknown indication
     Dosage: UNK
     Route: 065
  3. DOXYCYCLINE [Concomitant]
     Active Substance: DOXYCYCLINE
     Indication: Product used for unknown indication
     Dosage: UNK
     Route: 065

REACTIONS (19)
  - Cerebrovascular accident [Unknown]
  - Myocardial infarction [Unknown]
  - Jaundice [Unknown]
  - Pneumonia [Unknown]
  - Post-traumatic stress disorder [Unknown]
  - Autism spectrum disorder [Unknown]
  - Depression [Unknown]
  - Hypoaesthesia [Unknown]
  - Migraine [Unknown]
  - COVID-19 [Unknown]
  - Anxiety [Unknown]
  - Lung disorder [Unknown]
  - Rash [Unknown]
  - Hypertension [Unknown]
  - Diplopia [Unknown]
  - Panic attack [Unknown]
  - Burning sensation [Unknown]
  - Feeling abnormal [Unknown]
  - Synovial cyst [Unknown]
